FAERS Safety Report 5112454-6 (Version None)
Quarter: 2006Q3

REPORT INFORMATION
  Report Type: 
  Country: None (occurrence: None)
  Receive Date: 20060922
  Receipt Date: 20060627
  Transmission Date: 20061208
  Serious: Yes (Other)
  Sender: FDA-Public Use
  Company Number: US-BAYER-200612709BCC

PATIENT
  Age: 74 Year
  Sex: Female
  Weight: 82 kg

DRUGS (9)
  1. ALEVE (CAPLET) [Suspect]
     Indication: ABDOMINAL PAIN UPPER
     Dosage: TOTAL DAILY DOSE: 880 MG  UNIT DOSE: 220 MG
     Route: 048
  2. ALEVE COLD AND SINUS [Suspect]
     Indication: HEADACHE
     Route: 048
  3. ASPIRIN [Suspect]
     Indication: PROPHYLAXIS
     Route: 048
  4. ALKA-SELTZER [Suspect]
     Indication: PAIN
  5. ALKA-SELTZER PLUS [Suspect]
     Indication: PAIN
  6. MYLANTA [Concomitant]
  7. BENADRYL [Concomitant]
  8. MEDICATION FOR HIGH BLOOD PRESSURE [Concomitant]
  9. MEDICATION FOR DIABETES [Concomitant]

REACTIONS (8)
  - ABDOMINAL PAIN UPPER [None]
  - CEREBROVASCULAR ACCIDENT [None]
  - DYSPEPSIA [None]
  - GASTRIC DILATATION [None]
  - GASTRITIS [None]
  - HEADACHE [None]
  - HIATUS HERNIA [None]
  - ULCER HAEMORRHAGE [None]
